FAERS Safety Report 5708431-4 (Version None)
Quarter: 2008Q2

REPORT INFORMATION
  Report Type: 
  Country: None (occurrence: None)
  Receive Date: 20080414
  Receipt Date: 20080402
  Transmission Date: 20081010
  Serious: Yes (Hospitalization, Disabling)
  Sender: FDA-Public Use
  Company Number: 2008-01182

PATIENT
  Age: 70 Year
  Sex: Female
  Weight: 56 kg

DRUGS (7)
  1. VELCADE [Suspect]
     Indication: MULTIPLE MYELOMA
     Dosage: 2 MG, INTRAVENOUS
     Route: 042
     Dates: start: 20070717, end: 20071227
  2. ZOMETA [Suspect]
     Indication: DRUG USE FOR UNKNOWN INDICATION
     Dosage: 4 MG, INTRAVENOUS
     Route: 042
     Dates: start: 20080121, end: 20080121
  3. THALIDOMIDE [Suspect]
     Indication: DRUG USE FOR UNKNOWN INDICATION
     Dosage: 1 MG, ORAL
     Route: 048
     Dates: start: 20080206, end: 20080208
  4. DOXORUBICIN HCL [Suspect]
     Indication: NEOPLASM MALIGNANT
     Dosage: 9 MG/M2
  5. DEXAMETHASONE TAB [Suspect]
     Indication: NEOPLASM MALIGNANT
     Dosage: 40 MG, INTRAVENOUS
     Route: 042
  6. CLONAZEPAM [Concomitant]
  7. NEURONTIN [Concomitant]

REACTIONS (2)
  - FACIAL PALSY [None]
  - GUILLAIN-BARRE SYNDROME [None]
